FAERS Safety Report 7779024-2 (Version None)
Quarter: 2011Q3

REPORT INFORMATION
  Report Type: 
  Country: None (occurrence: None)
  Receive Date: 20110926
  Receipt Date: 20110922
  Transmission Date: 20111222
  Serious: Yes (Life-Threatening, Other)
  Sender: FDA-Public Use
  Company Number: TW-ROXANE LABORATORIES, INC.-2011-RO-01332RO

PATIENT
  Age: 26 Year
  Sex: Male

DRUGS (3)
  1. ZOLPIDEM [Suspect]
     Dosage: 10 MG
  2. ZOLPIDEM [Suspect]
  3. ZOLPIDEM [Suspect]
     Dosage: 400 MG

REACTIONS (5)
  - DRUG DEPENDENCE [None]
  - DELIRIUM [None]
  - BORDERLINE PERSONALITY DISORDER [None]
  - DRUG WITHDRAWAL SYNDROME [None]
  - SUICIDE ATTEMPT [None]
